FAERS Safety Report 16823397 (Version 2)
Quarter: 2019Q4

REPORT INFORMATION
  Report Type: Report from Study
  Country: US (occurrence: US)
  Receive Date: 20190918
  Receipt Date: 20191010
  Transmission Date: 20200122
  Serious: No
  Sender: FDA-Public Use
  Company Number: US-BEH-2019106399

PATIENT
  Age: 38 Year
  Sex: Male
  Weight: 74.83 kg

DRUGS (2)
  1. HAEGARDA [Suspect]
     Active Substance: HUMAN C1-ESTERASE INHIBITOR
     Indication: PROPHYLAXIS
  2. HAEGARDA [Suspect]
     Active Substance: HUMAN C1-ESTERASE INHIBITOR
     Indication: HEREDITARY ANGIOEDEMA
     Dosage: 2000 INTERNATIONAL UNIT, BIW, EVERY 3 TO 4 DAYS
     Route: 065

REACTIONS (3)
  - No adverse event [Unknown]
  - Product supply issue [Unknown]
  - Product dose omission [Unknown]
